FAERS Safety Report 23448533 (Version 1)
Quarter: 2024Q1

REPORT INFORMATION
  Report Type: Spontaneous
  Country: GB (occurrence: GB)
  Receive Date: 20240127
  Receipt Date: 20240127
  Transmission Date: 20240410
  Serious: Yes (Other)
  Sender: FDA-Public Use
  Company Number: None

PATIENT
  Age: 72 Year
  Sex: Female
  Weight: 68 kg

DRUGS (2)
  1. HYDROXYCHLOROQUINE [Suspect]
     Active Substance: HYDROXYCHLOROQUINE
     Indication: Mixed connective tissue disease
     Dates: start: 20231215, end: 20231220
  2. FAMOTIDINE [Concomitant]
     Active Substance: FAMOTIDINE

REACTIONS (5)
  - Abdominal pain upper [Recovering/Resolving]
  - Dizziness [Unknown]
  - Dysphagia [Unknown]
  - Chest pain [Unknown]
  - Gastrooesophageal reflux disease [Unknown]

NARRATIVE: CASE EVENT DATE: 20231215
